FAERS Safety Report 6013354-X (Version None)
Quarter: 2008Q4

REPORT INFORMATION
  Report Type: 
  Country: None (occurrence: None)
  Receive Date: 20081219
  Receipt Date: 20081216
  Transmission Date: 20090506
  Serious: Yes (Death)
  Sender: FDA-Public Use
  Company Number: US-KINGPHARMUSA00001-K200801412

PATIENT
  Age: 33 Year
  Sex: Male

DRUGS (2)
  1. AVINZA [Suspect]
     Dosage: UNK
     Route: 048
  2. METHADONE HCL [Suspect]
     Dosage: UNK
     Route: 048

REACTIONS (1)
  - CARDIO-RESPIRATORY ARREST [None]
